FAERS Safety Report 24073023 (Version 2)
Quarter: 2024Q3

REPORT INFORMATION
  Report Type: Spontaneous
  Country: AU (occurrence: AU)
  Receive Date: 20240710
  Receipt Date: 20240814
  Transmission Date: 20241017
  Serious: Yes (Other)
  Sender: ACCORD
  Company Number: AU-Accord-433846

PATIENT
  Sex: Female

DRUGS (1)
  1. PACLITAXEL [Suspect]
     Active Substance: PACLITAXEL
     Indication: Product used for unknown indication
     Dosage: STRENGTH: 300MG/50ML, CONCENTRATED

REACTIONS (6)
  - Flushing [Unknown]
  - Back pain [Unknown]
  - Dyspnoea [Unknown]
  - Tachycardia [Unknown]
  - Respiratory rate increased [Unknown]
  - Anxiety [Unknown]

NARRATIVE: CASE EVENT DATE: 20240531
